FAERS Safety Report 5149279-1 (Version None)
Quarter: 2006Q4

REPORT INFORMATION
  Report Type: 
  Country: None (occurrence: None)
  Receive Date: 20061113
  Receipt Date: 20051025
  Transmission Date: 20070319
  Serious: No
  Sender: FDA-Public Use
  Company Number: 423374

PATIENT
  Age: 84 Year
  Sex: Female

DRUGS (6)
  1. COREG [Suspect]
     Dosage: 3.125MG TWICE PER DAY
     Route: 048
     Dates: start: 20050701, end: 20051007
  2. LASIX [Concomitant]
  3. ALTACE [Concomitant]
  4. PRAVACHOL [Concomitant]
  5. AXID [Concomitant]
  6. COUMADIN [Concomitant]

REACTIONS (8)
  - DIARRHOEA [None]
  - DYSPEPSIA [None]
  - FATIGUE [None]
  - FLATULENCE [None]
  - JOINT SWELLING [None]
  - MUSCULOSKELETAL PAIN [None]
  - PRURITUS [None]
  - RASH [None]
